FAERS Safety Report 17846583 (Version 3)
Quarter: 2020Q3

REPORT INFORMATION
  Report Type: Spontaneous
  Country: US (occurrence: US)
  Receive Date: 20200601
  Receipt Date: 20200724
  Transmission Date: 20201103
  Serious: No
  Sender: FDA-Public Use
  Company Number: US-GLAXOSMITHKLINE-US2020AMR089266

PATIENT
  Age: 83 Year
  Sex: Female

DRUGS (2)
  1. ZEJULA [Suspect]
     Active Substance: NIRAPARIB
     Indication: OVARIAN CANCER
     Dosage: 200 MG, QD
     Dates: start: 20200511
  2. ZEJULA [Suspect]
     Active Substance: NIRAPARIB
     Indication: NEOPLASM MALIGNANT
     Dosage: 200 MG, QD
     Dates: start: 20200513

REACTIONS (13)
  - Sleep disorder [Unknown]
  - Hypoaesthesia [Unknown]
  - Abdominal pain upper [Unknown]
  - Constipation [Unknown]
  - Paraesthesia [Unknown]
  - Nail disorder [Unknown]
  - Blood pressure increased [Unknown]
  - Joint swelling [Unknown]
  - Back pain [Unknown]
  - Condition aggravated [Unknown]
  - Faeces soft [Unknown]
  - Haematoma [Unknown]
  - Platelet count decreased [Unknown]

NARRATIVE: CASE EVENT DATE: 202005
